FAERS Safety Report 8051430 (Version 2)
Quarter: 2013Q3

REPORT INFORMATION
  Report Type: Spontaneous
  Country: US (occurrence: US)
  Receive Date: 20110725
  Receipt Date: 20130802
  Transmission Date: 20140515
  Serious: No
  Sender: FDA-Public Use
  Company Number: US-BRISTOL-MYERS SQUIBB COMPANY-15136278

PATIENT
  Age: 65 Year
  Sex: Female
  Weight: 81.63 kg

DRUGS (4)
  1. COUMADIN TABS 2.5 MG [Suspect]
     Indication: THROMBOSIS
     Dosage: DOSE INCREASED TO 5MG FOR 3 DAYS AND RETURNED TO NORMAL DOSE 2.5MG, CONSUMER STARTED 8YRS AGO.
  2. INDERAL [Concomitant]
  3. XANAX [Concomitant]
  4. ERY-TAB [Concomitant]

REACTIONS (7)
  - Rash macular [Unknown]
  - Arthralgia [Unknown]
  - Local swelling [Unknown]
  - Blister [Unknown]
  - Skin exfoliation [Unknown]
  - International normalised ratio decreased [Unknown]
  - Hypertension [Unknown]
